FAERS Safety Report 25186507 (Version 1)
Quarter: 2025Q2

REPORT INFORMATION
  Report Type: Report from Study
  Country: US (occurrence: US)
  Receive Date: 20250411
  Receipt Date: 20250411
  Transmission Date: 20250717
  Serious: Yes (Other)
  Sender: ABBVIE
  Company Number: US-ABBVIE-6212612

PATIENT
  Age: 51 Year
  Sex: Male

DRUGS (1)
  1. RINVOQ [Suspect]
     Active Substance: UPADACITINIB
     Indication: Dermatitis atopic
     Route: 048
     Dates: start: 202501

REACTIONS (4)
  - Systemic lupus erythematosus [Unknown]
  - Immune system disorder [Unknown]
  - Coeliac disease [Unknown]
  - Eczema [Unknown]

NARRATIVE: CASE EVENT DATE: 20250101
